FAERS Safety Report 21916401 (Version 3)
Quarter: 2024Q1

REPORT INFORMATION
  Report Type: Spontaneous
  Country: US (occurrence: US)
  Receive Date: 20230126
  Receipt Date: 20240102
  Transmission Date: 20240409
  Serious: Yes (Death)
  Sender: FDA-Public Use
  Company Number: US-PFIZER INC-202300036573

PATIENT
  Age: 90 Year
  Sex: Female

DRUGS (3)
  1. VYNDAMAX [Suspect]
     Active Substance: TAFAMIDIS
     Indication: Cardiac failure
     Dosage: 61 MG
     Dates: start: 202301
  2. TAFAMIDIS MEGLUMINE [Suspect]
     Active Substance: TAFAMIDIS MEGLUMINE
     Indication: Cardiac amyloidosis
     Dosage: 20 MG, 1X/DAY
     Dates: start: 202301
  3. TAFAMIDIS MEGLUMINE [Suspect]
     Active Substance: TAFAMIDIS MEGLUMINE
     Indication: Cardiac failure

REACTIONS (3)
  - Cardiac amyloidosis [Fatal]
  - Disease progression [Fatal]
  - Off label use [Unknown]
